FAERS Safety Report 7475043-4 (Version None)
Quarter: 2011Q2

REPORT INFORMATION
  Report Type: 
  Country: None (occurrence: None)
  Receive Date: 20110512
  Receipt Date: 20110413
  Transmission Date: 20111010
  Serious: Yes (Other)
  Sender: FDA-Public Use
  Company Number: US-BAYER-2011-008717

PATIENT
  Age: 24 Year
  Sex: Female
  Weight: 86.168 kg

DRUGS (3)
  1. NEXIUM [Concomitant]
     Indication: GASTROOESOPHAGEAL REFLUX DISEASE
     Dosage: 40 MG, UNK
     Dates: start: 20081101, end: 20100401
  2. IBUPROFEN (ADVIL) [Concomitant]
     Indication: ANALGESIC THERAPY
  3. YAZ [Suspect]
     Indication: PRODUCT USED FOR UNKNOWN INDICATION
     Dosage: UNK
     Dates: start: 20081001, end: 20090301

REACTIONS (1)
  - DEEP VEIN THROMBOSIS [None]
